FAERS Safety Report 7499310-3 (Version None)
Quarter: 2011Q2

REPORT INFORMATION
  Report Type: 
  Country: None (occurrence: None)
  Receive Date: 20110524
  Receipt Date: 20110517
  Transmission Date: 20111010
  Serious: Yes (Hospitalization)
  Sender: FDA-Public Use
  Company Number: US-SANOFI-AVENTIS-2011SA025556

PATIENT
  Age: 75 Year
  Sex: Female
  Weight: 77 kg

DRUGS (3)
  1. ZYRTEC [Suspect]
     Route: 065
  2. SYNTHROID [Concomitant]
  3. ALLEGRA [Suspect]
     Route: 048
     Dates: start: 20040101

REACTIONS (5)
  - PNEUMONIA [None]
  - HEADACHE [None]
  - CHEST DISCOMFORT [None]
  - OROPHARYNGEAL PAIN [None]
  - HYPOAESTHESIA [None]
